FAERS Safety Report 12522026 (Version 2)
Quarter: 2016Q3

REPORT INFORMATION
  Report Type: Report from Study
  Country: US (occurrence: US)
  Receive Date: 20160701
  Receipt Date: 20160714
  Transmission Date: 20161109
  Serious: Yes (Other)
  Sender: FDA-Public Use
  Company Number: US-ARIAD PHARMACEUTICALS, INC-2014US003244

PATIENT
  Age: 67 Year
  Sex: Female
  Weight: 70 kg

DRUGS (1)
  1. PONATINIB [Suspect]
     Active Substance: PONATINIB
     Indication: HAEMATOLOGICAL MALIGNANCY
     Dosage: 30 MG, QD
     Route: 048
     Dates: start: 20090413, end: 20120829

REACTIONS (1)
  - Peripheral vascular disorder [Not Recovered/Not Resolved]

NARRATIVE: CASE EVENT DATE: 20090901
